FAERS Safety Report 7578701-6 (Version None)
Quarter: 2011Q2

REPORT INFORMATION
  Report Type: 
  Country: None (occurrence: None)
  Receive Date: 20110628
  Receipt Date: 20100714
  Transmission Date: 20111010
  Serious: No
  Sender: FDA-Public Use
  Company Number: US-PFIZER INC-2010088752

PATIENT
  Sex: Female
  Weight: 86.168 kg

DRUGS (3)
  1. DETROL LA [Suspect]
     Indication: POLLAKIURIA
     Dosage: 4 MG, DAILY
     Route: 048
     Dates: start: 20100101, end: 20100301
  2. DETROL LA [Suspect]
     Indication: URINARY INCONTINENCE
  3. DETROL LA [Suspect]
     Indication: MICTURITION URGENCY

REACTIONS (2)
  - DRUG INEFFECTIVE [None]
  - POLLAKIURIA [None]
